FAERS Safety Report 9798632 (Version 1)
Quarter: 2014Q1

REPORT INFORMATION
  Report Type: Spontaneous
  Country: FR (occurrence: FR)
  Receive Date: 20140106
  Receipt Date: 20140106
  Transmission Date: 20141002
  Serious: Yes (Death)
  Sender: FDA-Public Use
  Company Number: FR-CELGENEUS-056-21880-13125336

PATIENT
  Sex: 0

DRUGS (6)
  1. REVLIMID [Suspect]
     Indication: ACUTE MYELOID LEUKAEMIA
     Dosage: 10 MILLIGRAM
     Route: 048
  2. AZACITIDINE [Suspect]
     Indication: ACUTE MYELOID LEUKAEMIA
     Dosage: 75 MILLIGRAM/SQ. METER
     Route: 058
  3. LOMUSTINE [Concomitant]
     Indication: ACUTE MYELOID LEUKAEMIA
     Dosage: 200 MILLIGRAM/SQ. METER
     Route: 048
  4. IDARUBICIN [Concomitant]
     Indication: ACUTE MYELOID LEUKAEMIA
     Dosage: 8 MILLIGRAM/SQ. METER
     Route: 048
  5. CYTARABINE [Concomitant]
     Indication: ACUTE MYELOID LEUKAEMIA
     Dosage: 100 MILLIGRAM/SQ. METER
     Route: 048
  6. GRANULOCYTE COLONY-STIMULATING FACTOR NOS [Concomitant]
     Indication: ACUTE MYELOID LEUKAEMIA
     Route: 048

REACTIONS (1)
  - Graft versus host disease [Fatal]
